FAERS Safety Report 6998072-3 (Version None)
Quarter: 2010Q3

REPORT INFORMATION
  Report Type: 
  Country: None (occurrence: None)
  Receive Date: 20100920
  Receipt Date: 20100602
  Transmission Date: 20110219
  Serious: No
  Sender: FDA-Public Use
  Company Number: US-ASTRAZENECA-2010SE14941

PATIENT
  Age: 51 Year
  Sex: Male
  Weight: 79.4 kg

DRUGS (9)
  1. SEROQUEL [Suspect]
     Indication: BIPOLAR I DISORDER
     Route: 048
     Dates: start: 20100324, end: 20100326
  2. SEROQUEL [Suspect]
     Route: 048
     Dates: start: 20100326, end: 20100328
  3. SEROQUEL [Suspect]
     Route: 048
     Dates: start: 20100328, end: 20100330
  4. SEROQUEL [Suspect]
     Dosage: 200 MG 3-4 TABLETS AT HS
     Route: 048
     Dates: start: 20100331
  5. REMERON [Concomitant]
     Dosage: 40-45 MG AT NIGHT
  6. KLONZIPAN [Concomitant]
  7. AMBIEN [Concomitant]
  8. RISPERDAL [Concomitant]
     Dosage: 0.5 TO 2 MG AT NIGHT
     Dates: start: 20100419
  9. NORCO [Concomitant]

REACTIONS (10)
  - BALANCE DISORDER [None]
  - CONFUSIONAL STATE [None]
  - FALL [None]
  - FATIGUE [None]
  - FEAR [None]
  - FEELING ABNORMAL [None]
  - FEELING DRUNK [None]
  - HEAD INJURY [None]
  - INSOMNIA [None]
  - SPEECH DISORDER [None]
